FAERS Safety Report 8493475-2 (Version None)
Quarter: 2012Q3

REPORT INFORMATION
  Report Type: 
  Country: None (occurrence: None)
  Receive Date: 20120706
  Receipt Date: 20120618
  Transmission Date: 20120928
  Serious: No
  Sender: FDA-Public Use
  Company Number: US-ASTRAZENECA-2012SE40669

PATIENT

DRUGS (2)
  1. NEXIUM [Suspect]
     Route: 048
  2. RANITIDINE [Concomitant]

REACTIONS (2)
  - ANXIETY [None]
  - IRRITABILITY [None]
